FAERS Safety Report 16780442 (Version 1)
Quarter: 2019Q3

REPORT INFORMATION
  Report Type: Spontaneous
  Country: GB (occurrence: GB)
  Receive Date: 20190906
  Receipt Date: 20190906
  Transmission Date: 20191005
  Serious: Yes (Other)
  Sender: FDA-Public Use
  Company Number: GB-MYLANLABS-2019M1082838

PATIENT
  Sex: Female

DRUGS (1)
  1. SALBUTAMOL [Suspect]
     Active Substance: ALBUTEROL
     Indication: BRONCHOSPASM
     Dosage: FORMULATION: NEBULES; SHE WAS NEBULISED WITH THREE 5MG (LOW DOSE) SALBUTAMOL NEBULES
     Route: 055

REACTIONS (2)
  - Hyperlactacidaemia [Unknown]
  - Metabolic acidosis [Unknown]
